FAERS Safety Report 7705952-X (Version None)
Quarter: 2011Q3

REPORT INFORMATION
  Report Type: 
  Country: None (occurrence: None)
  Receive Date: 20110824
  Receipt Date: 20110812
  Transmission Date: 20111222
  Serious: Yes (Other)
  Sender: FDA-Public Use
  Company Number: PHHY2011CA39933

PATIENT
  Sex: Female

DRUGS (3)
  1. CLOZAPINE [Suspect]
     Indication: SCHIZOPHRENIA
  2. CLOZAPINE [Suspect]
     Indication: PSYCHOTIC DISORDER
     Dosage: 50, 100 MG DINNER, 150 MG QHS
     Dates: start: 20110308
  3. CLOZAPINE [Suspect]
     Indication: HUNTINGTON'S DISEASE

REACTIONS (1)
  - HUNTINGTON'S DISEASE [None]
